FAERS Safety Report 10436249 (Version 1)
Quarter: 2014Q3

REPORT INFORMATION
  Report Type: Spontaneous
  Country: IT (occurrence: IT)
  Receive Date: 20140908
  Receipt Date: 20140908
  Transmission Date: 20150326
  Serious: Yes (Hospitalization)
  Sender: FDA-Public Use
  Company Number: IT-ROCHE-1459344

PATIENT
  Age: 60 Year
  Sex: Male

DRUGS (3)
  1. MABTHERA [Suspect]
     Active Substance: RITUXIMAB
     Indication: GRANULOMATOSIS WITH POLYANGIITIS
     Route: 042
     Dates: start: 20120705, end: 20140429
  2. AVODART [Concomitant]
     Active Substance: DUTASTERIDE
     Route: 065
  3. OMNIC [Concomitant]
     Active Substance: TAMSULOSIN HYDROCHLORIDE
     Route: 065

REACTIONS (2)
  - Cholestasis [Recovering/Resolving]
  - Hepatitis B [Recovering/Resolving]

NARRATIVE: CASE EVENT DATE: 20140721
